FAERS Safety Report 18716681 (Version 1)
Quarter: 2021Q1

REPORT INFORMATION
  Report Type: Spontaneous
  Country: US (occurrence: US)
  Receive Date: 20210108
  Receipt Date: 20210108
  Transmission Date: 20210419
  Serious: Yes (Hospitalization)
  Sender: FDA-Public Use
  Company Number: None

PATIENT
  Age: 72 Year
  Sex: Female
  Weight: 40.92 kg

DRUGS (1)
  1. CASIRIVIMAB/IMDEVIMAB [Suspect]
     Active Substance: CASIRIVIMAB\IMDEVIMAB
     Indication: COVID-19
     Dosage: ?          OTHER FREQUENCY:ONCE;?
     Route: 040
     Dates: start: 20200107, end: 20200107

REACTIONS (7)
  - Hypertension [None]
  - Dyspnoea [None]
  - Chest pain [None]
  - Headache [None]
  - Hypertensive urgency [None]
  - Vision blurred [None]
  - Infusion related reaction [None]

NARRATIVE: CASE EVENT DATE: 20200107
